FAERS Safety Report 4976782-7 (Version None)
Quarter: 2006Q2

REPORT INFORMATION
  Report Type: 
  Country: None (occurrence: None)
  Receive Date: 20060419
  Receipt Date: 20060410
  Transmission Date: 20061013
  Serious: Yes (Death)
  Sender: FDA-Public Use
  Company Number: ES-GLAXOSMITHKLINE-B0420584A

PATIENT
  Age: 69 Year
  Sex: Male

DRUGS (5)
  1. ZINNAT [Suspect]
     Indication: INFECTION
     Route: 048
     Dates: start: 20030101, end: 20031125
  2. RENITEC [Suspect]
     Dosage: 5MG PER DAY
     Route: 048
     Dates: start: 20021001, end: 20031222
  3. ZOCOR [Suspect]
     Dosage: 10MG PER DAY
     Route: 048
     Dates: start: 20030123, end: 20030721
  4. ADIRO [Suspect]
     Dosage: 100MG PER DAY
     Route: 048
     Dates: start: 20021001, end: 20031222
  5. ATENOLOL [Suspect]
     Dosage: 50MG PER DAY
     Route: 048
     Dates: start: 20021001, end: 20040112

REACTIONS (3)
  - DEATH [None]
  - HEPATIC ENZYME INCREASED [None]
  - HEPATITIS [None]
